FAERS Safety Report 22113138 (Version 1)
Quarter: 2023Q1

REPORT INFORMATION
  Report Type: Spontaneous
  Country: AU (occurrence: AU)
  Receive Date: 20230320
  Receipt Date: 20230320
  Transmission Date: 20230417
  Serious: Yes (Other)
  Sender: FDA-Public Use
  Company Number: AU-CELLTRION INC.-2021AU019299

PATIENT

DRUGS (7)
  1. INFLECTRA [Suspect]
     Active Substance: INFLIXIMAB-DYYB
     Indication: Crohn^s disease
     Dosage: 5 MG/KG, Q8W
     Dates: start: 202008
  2. INFLECTRA [Suspect]
     Active Substance: INFLIXIMAB-DYYB
     Dosage: 10 MG/KG, Q8W
     Dates: start: 202102
  3. INFLECTRA [Suspect]
     Active Substance: INFLIXIMAB-DYYB
     Dosage: 10 MG/KG, 6-WEEKLY (ESCALATED FREQUENCY)
     Dates: start: 202109
  4. INFLECTRA [Suspect]
     Active Substance: INFLIXIMAB-DYYB
     Dosage: 10 MG/KG EVERY SIX WEEKS
  5. THIOGUANINE ANHYDROUS [Concomitant]
     Active Substance: THIOGUANINE ANHYDROUS
     Indication: Crohn^s disease
     Dosage: 20 MG, DAILY
     Dates: end: 202208
  6. VALIUM [Concomitant]
     Active Substance: DIAZEPAM
     Dosage: UNK, PRN
  7. PAROXETINE [Concomitant]
     Active Substance: PAROXETINE
     Dosage: 20 MG
     Dates: start: 2019

REACTIONS (13)
  - Condition aggravated [Not Recovered/Not Resolved]
  - Intestinal dilatation [Unknown]
  - Restless legs syndrome [Unknown]
  - Hidradenitis [Unknown]
  - Liver function test abnormal [Unknown]
  - Fatigue [Unknown]
  - Abdominal distension [Unknown]
  - Arthralgia [Unknown]
  - Arthritis enteropathic [Unknown]
  - Alanine aminotransferase increased [Unknown]
  - Aspartate aminotransferase increased [Unknown]
  - Blood bilirubin increased [Unknown]
  - Off label use [Unknown]

NARRATIVE: CASE EVENT DATE: 20200801
